FAERS Safety Report 5377278-3 (Version None)
Quarter: 2007Q3

REPORT INFORMATION
  Report Type: 
  Country: None (occurrence: None)
  Receive Date: 20070703
  Receipt Date: 20070625
  Transmission Date: 20080115
  Serious: Yes (Other)
  Sender: FDA-Public Use
  Company Number: US-ELI_LILLY_AND_COMPANY-US200706005523

PATIENT
  Sex: Female

DRUGS (1)
  1. FORTEO [Suspect]
     Indication: OSTEOPOROSIS
     Dosage: UNK, UNK
     Dates: start: 20070301, end: 20070612

REACTIONS (11)
  - ABDOMINAL PAIN UPPER [None]
  - ANXIETY [None]
  - ASTHENIA [None]
  - DIZZINESS [None]
  - EATING DISORDER [None]
  - FALL [None]
  - HIP FRACTURE [None]
  - MALAISE [None]
  - MEMORY IMPAIRMENT [None]
  - MUSCULOSKELETAL CHEST PAIN [None]
  - SYNCOPE [None]
